FAERS Safety Report 17921701 (Version 1)
Quarter: 2020Q2

REPORT INFORMATION
  Report Type: Spontaneous
  Country: CA (occurrence: CA)
  Receive Date: 20200622
  Receipt Date: 20200622
  Transmission Date: 20200714
  Serious: Yes (Death)
  Sender: FDA-Public Use
  Company Number: CA-ROCHE-2627036

PATIENT
  Age: 71 Year
  Sex: Male

DRUGS (12)
  1. DEXAMETHASONE. [Concomitant]
     Active Substance: DEXAMETHASONE
  2. GRANISETRON [Concomitant]
     Active Substance: GRANISETRON
  3. LORAZEPAM. [Concomitant]
     Active Substance: LORAZEPAM
  4. AVODART [Concomitant]
     Active Substance: DUTASTERIDE
  5. FRAGMIN [Concomitant]
     Active Substance: DALTEPARIN SODIUM
  6. RANITIDINE. [Concomitant]
     Active Substance: RANITIDINE
  7. HYDROXOCOBALAMIN [Concomitant]
     Active Substance: HYDROXOCOBALAMIN
  8. LEVETIRACETAM. [Concomitant]
     Active Substance: LEVETIRACETAM
  9. PERINDOPRIL [Concomitant]
     Active Substance: PERINDOPRIL
  10. PROCHLORAZINE [Concomitant]
  11. BEVACIZUMAB. [Suspect]
     Active Substance: BEVACIZUMAB
     Indication: MALIGNANT GLIOMA
     Route: 042
  12. BEVACIZUMAB. [Suspect]
     Active Substance: BEVACIZUMAB
     Indication: GLIOBLASTOMA

REACTIONS (2)
  - Bedridden [Fatal]
  - Off label use [Fatal]
